FAERS Safety Report 5146753-9 (Version None)
Quarter: 2006Q4

REPORT INFORMATION
  Report Type: 
  Country: None (occurrence: None)
  Receive Date: 20061102
  Receipt Date: 20061026
  Transmission Date: 20070319
  Serious: Yes (Hospitalization, Other)
  Sender: FDA-Public Use
  Company Number: 2006-05583

PATIENT
  Age: 25 Year
  Sex: Female
  Weight: 54.4 kg

DRUGS (1)
  1. LEVORA 15/30-28 [Suspect]
     Indication: CONTRACEPTION
     Dosage: 1 TABLET, DAILY, ORAL
     Route: 048
     Dates: start: 20020101

REACTIONS (2)
  - CHOLELITHIASIS [None]
  - PANCREATITIS [None]
